FAERS Safety Report 6259363-7 (Version None)
Quarter: 2009Q3

REPORT INFORMATION
  Report Type: 
  Country: None (occurrence: None)
  Receive Date: 20090706
  Receipt Date: 20090625
  Transmission Date: 20100115
  Serious: Yes (Other)
  Sender: FDA-Public Use
  Company Number: 237084K09USA

PATIENT
  Age: 70 Year
  Sex: Female

DRUGS (6)
  1. REBIF [Suspect]
     Indication: MULTIPLE SCLEROSIS
     Dosage: 44 MCG, 3 IN 1 WEEKS, SUBCUTANEOUS
     Route: 058
     Dates: start: 20021113
  2. METOPROLOL SUCCINATE [Concomitant]
  3. HYDROCHLOROTHIAZIDE [Concomitant]
  4. DOXAZOSIN MESYLATE [Concomitant]
  5. POTASSIUM (POTASSIUM) [Concomitant]
  6. OVER THE COUNTER IRON (IRON) [Concomitant]

REACTIONS (4)
  - ARTERIAL OCCLUSIVE DISEASE [None]
  - DYSPNOEA [None]
  - GAIT DISTURBANCE [None]
  - PAIN IN EXTREMITY [None]
